FAERS Safety Report 18821927 (Version 1)
Quarter: 2021Q1

REPORT INFORMATION
  Report Type: Other
  Country: NZ (occurrence: NZ)
  Receive Date: 20210202
  Receipt Date: 20210202
  Transmission Date: 20210419
  Serious: Yes (Other)
  Sender: FDA-Public Use
  Company Number: NZ-ROCHE-2760196

PATIENT
  Age: 38 Year
  Sex: Male

DRUGS (1)
  1. VEMURAFENIB. [Suspect]
     Active Substance: VEMURAFENIB
     Indication: METASTATIC MALIGNANT MELANOMA
     Route: 065

REACTIONS (10)
  - Uveitic glaucoma [Unknown]
  - Iris adhesions [Unknown]
  - Hypotony of eye [Unknown]
  - Choroidal neovascularisation [Unknown]
  - Macular fibrosis [Unknown]
  - Cataract [Unknown]
  - Cystoid macular oedema [Unknown]
  - Papillitis [Unknown]
  - Eye inflammation [Not Recovered/Not Resolved]
  - Uveitis [Not Recovered/Not Resolved]
